FAERS Safety Report 9835405 (Version 3)
Quarter: 2014Q1

REPORT INFORMATION
  Report Type: Report from Study
  Country: US (occurrence: US)
  Receive Date: 20140122
  Receipt Date: 20140319
  Transmission Date: 20141002
  Serious: Yes (Other)
  Sender: FDA-Public Use
  Company Number: US-PFIZER INC-2014010362

PATIENT
  Age: 40 Year
  Sex: Female
  Weight: 93.4 kg

DRUGS (1)
  1. TOFACITINIB CITRATE [Suspect]
     Indication: RHEUMATOID ARTHRITIS
     Dosage: 10 MG, 2X/DAY
     Route: 048
     Dates: start: 20131215, end: 20140109

REACTIONS (1)
  - Endometrial adenocarcinoma [Recovered/Resolved]
